FAERS Safety Report 21721578 (Version 3)
Quarter: 2022Q4

REPORT INFORMATION
  Report Type: Spontaneous
  Country: DE (occurrence: DE)
  Receive Date: 20221213
  Receipt Date: 20221223
  Transmission Date: 20230113
  Serious: No
  Sender: FDA-Public Use
  Company Number: DE-KYOWAKIRIN-2022BKK019265

PATIENT

DRUGS (1)
  1. CRYSVITA [Suspect]
     Active Substance: BUROSUMAB-TWZA
     Indication: Hereditary hypophosphataemic rickets
     Dosage: 30 MG, 1X/4 WEEKS(2 DOSES)
     Route: 058

REACTIONS (2)
  - Blood phosphorus decreased [Unknown]
  - Off label use [Not Recovered/Not Resolved]
